FAERS Safety Report 4919982-4 (Version None)
Quarter: 2006Q1

REPORT INFORMATION
  Report Type: 
  Country: None (occurrence: None)
  Receive Date: 20060216
  Receipt Date: 20060206
  Transmission Date: 20060701
  Serious: Yes (Hospitalization)
  Sender: FDA-Public Use
  Company Number: 2006US000250

PATIENT
  Age: 55 Year
  Sex: Male

DRUGS (15)
  1. PROGRAF [Suspect]
     Indication: PROPHYLAXIS AGAINST TRANSPLANT REJECTION
     Dosage: 3 MG, BID, ORAL
     Route: 048
     Dates: start: 20050503
  2. MYCOPHENOLATE MOFETIL (MYCOPHENOLATE MOFETIL) [Suspect]
     Indication: PROPHYLAXIS AGAINST TRANSPLANT REJECTION
     Dosage: 500 MG, BID, ORAL
     Route: 048
     Dates: start: 20050425
  3. PREDNISONE TAB [Suspect]
     Indication: PROPHYLAXIS AGAINST TRANSPLANT REJECTION
     Dosage: 5 MG, UID/QD, ORAL
     Route: 048
     Dates: start: 20050427
  4. THYMOGLOBULIN [Suspect]
     Indication: PROPHYLAXIS AGAINST TRANSPLANT REJECTION
     Dosage: 175 MG, QOD, IV NOS
     Route: 042
     Dates: start: 20050425, end: 20050501
  5. SEPTRA DS [Concomitant]
  6. NORVASC [Concomitant]
  7. VALCYTE [Concomitant]
  8. INSULIN [Concomitant]
  9. ZANTAC [Concomitant]
  10. HYDROCHLOROTHIAZID [Concomitant]
  11. VICODIN [Concomitant]
  12. METOPROLOL ^ALIUD PHARMA^ (METOPROLOL TARTRATE) [Concomitant]
  13. DIFLUCAN [Concomitant]
  14. PROTONIX [Concomitant]
  15. MULTIVITAMINS (ERGOCALCIFEROL, PANTHENOL, NICOTINAMIDE, THIAMINE HYDRO [Concomitant]

REACTIONS (4)
  - ENTEROBACTER INFECTION [None]
  - EPIDIDYMITIS [None]
  - ORCHITIS [None]
  - URINARY TRACT INFECTION BACTERIAL [None]
